FAERS Safety Report 23279000 (Version 1)
Quarter: 2023Q4

REPORT INFORMATION
  Report Type: Spontaneous
  Country: US (occurrence: US)
  Receive Date: 20231209
  Receipt Date: 20231209
  Transmission Date: 20240109
  Serious: Yes (Death)
  Sender: FDA-Public Use
  Company Number: US-CTI BIOPHARMA-2023US04297

PATIENT

DRUGS (8)
  1. VONJO [Suspect]
     Active Substance: PACRITINIB
     Indication: Myelofibrosis
     Dosage: 100 MG, BID
     Route: 048
     Dates: start: 20230125
  2. PROSCAR [Concomitant]
     Active Substance: FINASTERIDE
     Indication: Product used for unknown indication
     Route: 065
  3. FLOMAX [Concomitant]
     Active Substance: TAMSULOSIN HYDROCHLORIDE
     Indication: Product used for unknown indication
     Route: 065
  4. VITAMIN D3 [Concomitant]
     Active Substance: CHOLECALCIFEROL
     Indication: Product used for unknown indication
     Route: 065
  5. MOTRIN IB [Concomitant]
     Active Substance: IBUPROFEN
     Indication: Product used for unknown indication
     Route: 065
  6. FERROUS SULFATE [Concomitant]
     Active Substance: FERROUS SULFATE
     Indication: Product used for unknown indication
     Route: 065
  7. VITAMINS NOS [Concomitant]
     Active Substance: VITAMINS
     Indication: Product used for unknown indication
     Route: 065
  8. ONE DAILY [ASCORBIC ACID;CYANOCOBALAMIN;ERGOCALCIFEROL;FOLIC ACID;IRON [Concomitant]
     Indication: Product used for unknown indication
     Route: 065

REACTIONS (1)
  - Death [Fatal]
